FAERS Safety Report 9999242 (Version 1)
Quarter: 2014Q1

REPORT INFORMATION
  Report Type: Spontaneous
  Country: IN (occurrence: IN)
  Receive Date: 20140312
  Receipt Date: 20140312
  Transmission Date: 20141002
  Serious: Yes (Death, Hospitalization)
  Sender: FDA-Public Use
  Company Number: IN-CELGENEUS-078-21880-14024157

PATIENT
  Age: 60 Year
  Sex: Male

DRUGS (2)
  1. REVLIMID [Suspect]
     Indication: MYELODYSPLASTIC SYNDROME
     Dosage: 5 MILLIGRAM
     Route: 048
  2. PREDNISOLONE [Concomitant]
     Indication: SARCOIDOSIS
     Route: 048

REACTIONS (2)
  - Pulmonary alveolar haemorrhage [Fatal]
  - Respiratory failure [Fatal]
